FAERS Safety Report 19469950 (Version 1)
Quarter: 2021Q2

REPORT INFORMATION
  Report Type: Spontaneous
  Country: GB (occurrence: GB)
  Receive Date: 20210628
  Receipt Date: 20210628
  Transmission Date: 20210717
  Serious: Yes (Other)
  Sender: FDA-Public Use
  Company Number: GB-MYLANLABS-2021M1037199

PATIENT
  Age: 51 Year
  Sex: Female
  Weight: 62.59 kg

DRUGS (6)
  1. NITROFURANTOIN. [Suspect]
     Active Substance: NITROFURANTOIN
     Indication: INFECTION
  2. SAGE LEAF [Concomitant]
     Active Substance: HERBALS\SAGE
     Indication: ILL-DEFINED DISORDER
     Dosage: UNK
  3. NITROFURANTOIN. [Suspect]
     Active Substance: NITROFURANTOIN
     Indication: ILL-DEFINED DISORDER
     Dosage: 100 MILLIGRAM, BID (100 MG TWICE A DAY )
     Route: 048
     Dates: start: 20210617, end: 20210618
  4. VITAMIN B12 [Concomitant]
     Active Substance: CYANOCOBALAMIN
     Indication: ILL-DEFINED DISORDER
     Dosage: UNK
  5. VITAMIN C [Concomitant]
     Active Substance: ASCORBIC ACID
     Indication: ILL-DEFINED DISORDER
     Dosage: UNK
  6. RHODIOLA ROSEA [Concomitant]
     Active Substance: HERBALS
     Indication: ILL-DEFINED DISORDER
     Dosage: UNK

REACTIONS (12)
  - Headache [Recovering/Resolving]
  - Dizziness [Recovering/Resolving]
  - Chills [Recovering/Resolving]
  - Pain [Recovering/Resolving]
  - Muscle spasms [Recovering/Resolving]
  - Influenza like illness [Unknown]
  - Cough [Recovering/Resolving]
  - Abdominal pain upper [Recovering/Resolving]
  - Pyrexia [Recovering/Resolving]
  - Myalgia [Recovering/Resolving]
  - Arthralgia [Recovering/Resolving]
  - Asthenia [Unknown]

NARRATIVE: CASE EVENT DATE: 20210618
